FAERS Safety Report 11062533 (Version 1)
Quarter: 2015Q2

REPORT INFORMATION
  Report Type: Spontaneous
  Country: PT (occurrence: PT)
  Receive Date: 20150424
  Receipt Date: 20150424
  Transmission Date: 20150821
  Serious: Yes (Other)
  Sender: FDA-Public Use
  Company Number: PT-ACTAVIS-2015-08398

PATIENT
  Age: 41 Year
  Sex: Female

DRUGS (3)
  1. DOCETAXEL ACTAVIS [Suspect]
     Active Substance: DOCETAXEL
     Indication: BREAST CANCER
     Dosage: 75 MG/M2, 1/ THREE WEEKS
     Route: 042
     Dates: start: 20150312, end: 20150312
  2. ONDANSETROM                        /00955301/ [Concomitant]
     Indication: ALLERGY PROPHYLAXIS
     Dosage: 8 MG, DAILY; AS PART OF PRE-MEDICATION REGIMEN.
     Route: 042
     Dates: start: 20150312, end: 20150312
  3. ORADEXON                           /00016001/ [Concomitant]
     Indication: ALLERGY PROPHYLAXIS
     Dosage: 20 MG, DAILY; AS PART OF PRE-MEDICATION REGIMEN.
     Route: 042
     Dates: start: 20150312, end: 20150312

REACTIONS (5)
  - Skin lesion [Not Recovered/Not Resolved]
  - Injection site discolouration [Not Recovered/Not Resolved]
  - Injection site exfoliation [Not Recovered/Not Resolved]
  - Injection site pruritus [Not Recovered/Not Resolved]
  - Injection site erythema [Not Recovered/Not Resolved]

NARRATIVE: CASE EVENT DATE: 20150319
